FAERS Safety Report 17801155 (Version 1)
Quarter: 2020Q2

REPORT INFORMATION
  Report Type: Report from Study
  Country: GB (occurrence: GB)
  Receive Date: 20200519
  Receipt Date: 20200519
  Transmission Date: 20200714
  Serious: Yes (Hospitalization)
  Sender: FDA-Public Use
  Company Number: GB-ROCHE-2128769

PATIENT
  Sex: Female

DRUGS (10)
  1. ALENDRONIC ACID [Concomitant]
     Active Substance: ALENDRONIC ACID
  2. CARBOCISTEINE [Concomitant]
     Active Substance: CARBOCYSTEINE
  3. FOLIC ACID. [Concomitant]
     Active Substance: FOLIC ACID
  4. KEPPRA [Concomitant]
     Active Substance: LEVETIRACETAM
  5. ROACTEMRA [Suspect]
     Active Substance: TOCILIZUMAB
     Route: 058
     Dates: start: 20180524
  6. METHOTREXATE. [Concomitant]
     Active Substance: METHOTREXATE
  7. OMEPRAZOLE. [Concomitant]
     Active Substance: OMEPRAZOLE
     Dosage: WEEKLY
     Route: 065
  8. CALCIUM [Concomitant]
     Active Substance: CALCIUM
  9. ALENDRONIC ACID [Concomitant]
     Active Substance: ALENDRONIC ACID
     Dosage: WEEKLY
     Route: 065
  10. ROACTEMRA [Suspect]
     Active Substance: TOCILIZUMAB
     Indication: RHEUMATOID ARTHRITIS
     Route: 058
     Dates: start: 20180521

REACTIONS (15)
  - Contusion [Unknown]
  - Feeling abnormal [Unknown]
  - Migraine [Unknown]
  - Lung disorder [Unknown]
  - Condition aggravated [Unknown]
  - Tremor [Unknown]
  - Lower respiratory tract infection [Unknown]
  - Injection site reaction [Unknown]
  - Ill-defined disorder [Unknown]
  - Pain [Unknown]
  - Wrong technique in product usage process [Unknown]
  - Product storage error [Unknown]
  - Pneumonia [Unknown]
  - Fear of injection [Unknown]
  - Injection site pain [Unknown]
